FAERS Safety Report 7358412-2 (Version None)
Quarter: 2011Q1

REPORT INFORMATION
  Report Type: 
  Country: None (occurrence: None)
  Receive Date: 20110317
  Receipt Date: 20110310
  Transmission Date: 20110831
  Serious: Yes (Hospitalization)
  Sender: FDA-Public Use
  Company Number: US-GILEAD-2011-0036897

PATIENT
  Sex: Male

DRUGS (6)
  1. LETAIRIS [Suspect]
     Indication: CARDIAC FAILURE CONGESTIVE
  2. VENTAVIS [Concomitant]
  3. FLOLAN [Concomitant]
  4. LETAIRIS [Suspect]
     Indication: PULMONARY HYPERTENSION
     Route: 048
     Dates: start: 20080124
  5. LETAIRIS [Suspect]
     Indication: ISCHAEMIC CARDIOMYOPATHY
  6. REMODULIN [Concomitant]

REACTIONS (2)
  - SYNCOPE [None]
  - DYSPNOEA [None]
